FAERS Safety Report 7072379-6 (Version None)
Quarter: 2010Q4

REPORT INFORMATION
  Report Type: 
  Country: None (occurrence: None)
  Receive Date: 20101029
  Receipt Date: 20100119
  Transmission Date: 20110411
  Serious: No
  Sender: FDA-Public Use
  Company Number: A0840278A

PATIENT
  Age: 69 Year
  Sex: Male

DRUGS (1)
  1. ADVAIR DISKUS 100/50 [Suspect]
     Indication: ASTHMA
     Route: 055
     Dates: end: 20090117

REACTIONS (5)
  - ASTHENOPIA [None]
  - DYSPHONIA [None]
  - HEART RATE INCREASED [None]
  - THROAT IRRITATION [None]
  - VISION BLURRED [None]
